FAERS Safety Report 6250971-6 (Version None)
Quarter: 2009Q2

REPORT INFORMATION
  Report Type: 
  Country: None (occurrence: None)
  Receive Date: 20090630
  Receipt Date: 20090319
  Transmission Date: 20091009
  Serious: No
  Sender: FDA-Public Use
  Company Number: US-ABBOTT-09P-163-0561513-00

PATIENT
  Sex: Female

DRUGS (2)
  1. ZEMPLAR [Suspect]
     Indication: HYPERPARATHYROIDISM
     Dates: start: 20081001
  2. OSCAL D [Concomitant]
     Indication: DRUG USE FOR UNKNOWN INDICATION
     Dosage: 1.2G/800MG
     Dates: start: 20080701, end: 20090101

REACTIONS (3)
  - ASTHENIA [None]
  - MOBILITY DECREASED [None]
  - WEIGHT DECREASED [None]
